FAERS Safety Report 8984238 (Version 1)
Quarter: 2012Q4

REPORT INFORMATION
  Report Type: 
  Country: US (occurrence: US)
  Receive Date: 20121226
  Receipt Date: 20121226
  Transmission Date: 20130627
  Serious: Yes (Other)
  Sender: FDA-Public Use
  Company Number: US-AMGEN-USASP2012082934

PATIENT
  Age: 53 Year
  Sex: Female
  Weight: 76.64 kg

DRUGS (9)
  1. ENBREL [Suspect]
     Indication: PRODUCT USED FOR UNKNOWN INDICATION
     Dosage: 50 mg, qwk
     Route: 058
  2. METHOTREXATE [Concomitant]
     Dosage: 2.5 mg, UNK
  3. METFORMIN [Concomitant]
     Dosage: 500 mg, UNK
  4. SIMVASTATIN [Concomitant]
     Dosage: 20 mg, UNK
  5. TRIAMTEREEN/HYDROCHLOORTHIAZIDE A [Concomitant]
     Dosage: 50-25 mg, UNK
  6. ASPIRIN [Concomitant]
     Dosage: 81 mg, UNK, adult
  7. MULTIVITAMINS, PLAIN [Concomitant]
     Dosage: UNK
  8. CALCIUM D                          /00944201/ [Concomitant]
     Dosage: UNK
  9. FOLIC ACID [Concomitant]
     Dosage: UNK

REACTIONS (1)
  - Breast cancer [Unknown]
